FAERS Safety Report 20609557 (Version 6)
Quarter: 2024Q2

REPORT INFORMATION
  Report Type: Spontaneous
  Country: NL (occurrence: NL)
  Receive Date: 20220318
  Receipt Date: 20240619
  Transmission Date: 20240715
  Serious: Yes (Life-Threatening, Hospitalization, Other)
  Sender: FDA-Public Use
  Company Number: NL-DSJP-DSE-2022-107340

PATIENT
  Age: 67 Year
  Sex: Male

DRUGS (1)
  1. OLMESARTAN MEDOXOMIL [Suspect]
     Active Substance: OLMESARTAN MEDOXOMIL
     Indication: Infection
     Dosage: 160 MILLIGRAM, ONCE A DAY
     Route: 065

REACTIONS (7)
  - Bone marrow failure [Recovered/Resolved]
  - Overdose [Recovered/Resolved]
  - Infection [Unknown]
  - Respiratory failure [Unknown]
  - Pancytopenia [Recovered/Resolved]
  - Normocytic anaemia [Recovered/Resolved]
  - Product use in unapproved indication [Recovered/Resolved]
